FAERS Safety Report 4342710-0 (Version None)
Quarter: 2004Q2

REPORT INFORMATION
  Report Type: 
  Country: None (occurrence: None)
  Receive Date: 20040416
  Receipt Date: 20040331
  Transmission Date: 20050107
  Serious: Yes (Hospitalization)
  Sender: FDA-Public Use
  Company Number: DSA_23866_2004

PATIENT
  Age: 56 Year
  Sex: Male

DRUGS (10)
  1. EPROSARTAN [Suspect]
     Indication: HYPERTENSION
     Dosage: 600 MG DAILY PO
     Route: 048
     Dates: start: 20031221, end: 20031223
  2. EPROSARTAN [Suspect]
     Indication: HYPERTENSION
     Dosage: 300 MG DAILY PO
     Route: 048
     Dates: start: 20031228
  3. KINZAL KOMB [Concomitant]
  4. MICARDIS [Concomitant]
  5. BISOPROLOL [Concomitant]
  6. LANSOPRAZOL [Concomitant]
  7. PAROXETINUM [Concomitant]
  8. TERTAZEOAMUM [Concomitant]
  9. ZOLPIDEMI HEMITARTRAS [Concomitant]
  10. FLUVASTATINE [Concomitant]

REACTIONS (12)
  - ALANINE AMINOTRANSFERASE INCREASED [None]
  - ANGINA PECTORIS [None]
  - ASPARTATE AMINOTRANSFERASE INCREASED [None]
  - CHEST PAIN [None]
  - CORONARY ARTERY STENOSIS [None]
  - ELECTROCARDIOGRAM Q WAVES [None]
  - GAMMA-GLUTAMYLTRANSFERASE INCREASED [None]
  - HEART RATE INCREASED [None]
  - HYPERHIDROSIS [None]
  - HYPONATRAEMIA [None]
  - HYPOTENSION [None]
  - VERTIGO [None]
